FAERS Safety Report 7054112-7 (Version None)
Quarter: 2010Q4

REPORT INFORMATION
  Report Type: 
  Country: None (occurrence: None)
  Receive Date: 20101020
  Receipt Date: 20101006
  Transmission Date: 20110411
  Serious: Yes (Hospitalization, Other)
  Sender: FDA-Public Use
  Company Number: PHHY2010US67421

PATIENT
  Sex: Female

DRUGS (3)
  1. GLEEVEC [Suspect]
     Indication: CHRONIC MYELOID LEUKAEMIA
     Dosage: 400 MG, QD
     Route: 048
     Dates: start: 20100501
  2. GLEEVEC [Suspect]
     Dosage: 100 MG, UNK
     Route: 048
  3. GLEEVEC [Suspect]
     Dosage: 200 MG, UNK
     Route: 048

REACTIONS (8)
  - ABDOMINAL PAIN UPPER [None]
  - ANAEMIA [None]
  - BLADDER OPERATION [None]
  - DYSGEUSIA [None]
  - FLUID OVERLOAD [None]
  - HYPOTENSION [None]
  - PNEUMONIA [None]
  - WEIGHT INCREASED [None]
